FAERS Safety Report 25118742 (Version 1)
Quarter: 2025Q1

REPORT INFORMATION
  Report Type: Spontaneous
  Country: US (occurrence: None)
  Receive Date: 20250325
  Receipt Date: 20250325
  Transmission Date: 20250409
  Serious: Yes (Other)
  Sender: INCYTE
  Company Number: US-INCYTE CORPORATION-2025IN003135

PATIENT
  Age: 65 Year
  Weight: 79.6 kg

DRUGS (2)
  1. JAKAFI [Suspect]
     Active Substance: RUXOLITINIB
     Indication: Myelofibrosis
     Dosage: BID
  2. PELABRESIB [Suspect]
     Active Substance: PELABRESIB
     Indication: Myelofibrosis
     Dosage: UNK, DAILY X 14 DAYS FOLLOWED BY A 7-DAY BREAK (21-DAY CYCLE

REACTIONS (1)
  - Myelofibrosis [Unknown]
